FAERS Safety Report 7903327 (Version 2)
Quarter: 2013Q4

REPORT INFORMATION
  Report Type: Spontaneous
  Country: US (occurrence: US)
  Receive Date: 20110418
  Receipt Date: 20131011
  Transmission Date: 20140711
  Serious: Yes (Hospitalization, Other)
  Sender: FDA-Public Use
  Company Number: US-ASTRAZENECA-2011SE19983

PATIENT
  Age: 56 Year
  Sex: Female
  Weight: 74.8 kg

DRUGS (20)
  1. SEROQUEL [Suspect]
     Indication: BIPOLAR DISORDER
     Route: 048
     Dates: start: 2008
  2. SEROQUEL [Suspect]
     Indication: ANXIETY
     Route: 048
     Dates: start: 2008
  3. SEROQUEL [Suspect]
     Indication: BIPOLAR DISORDER
     Route: 048
     Dates: end: 201011
  4. SEROQUEL [Suspect]
     Indication: ANXIETY
     Route: 048
     Dates: end: 201011
  5. SEROQUEL [Suspect]
     Indication: BIPOLAR DISORDER
     Route: 048
     Dates: end: 201103
  6. SEROQUEL [Suspect]
     Indication: ANXIETY
     Route: 048
     Dates: end: 201103
  7. SEROQUEL [Suspect]
     Indication: BIPOLAR DISORDER
     Route: 048
     Dates: start: 201103, end: 20110407
  8. SEROQUEL [Suspect]
     Indication: ANXIETY
     Route: 048
     Dates: start: 201103, end: 20110407
  9. SEROQUEL [Suspect]
     Indication: BIPOLAR DISORDER
     Route: 048
     Dates: start: 20110407
  10. SEROQUEL [Suspect]
     Indication: ANXIETY
     Route: 048
     Dates: start: 20110407
  11. MORPHINE [Suspect]
  12. NEURONTIN [Concomitant]
     Indication: DIABETIC NEUROPATHY
     Dates: start: 2011
  13. METFORMIN [Concomitant]
  14. METFORMIN [Concomitant]
     Route: 048
     Dates: start: 2009
  15. AMBIEN [Concomitant]
     Route: 048
     Dates: start: 1998
  16. AMITRIPTYLINE [Concomitant]
     Indication: SLEEP DISORDER
     Route: 048
     Dates: start: 201309, end: 20131007
  17. AMITRIPTYLINE [Concomitant]
     Indication: SLEEP DISORDER
     Route: 048
     Dates: start: 20131007
  18. FENOFIBRATE [Concomitant]
     Indication: BLOOD TRIGLYCERIDES INCREASED
     Dates: start: 201308
  19. SIMVASTATIN [Concomitant]
     Indication: BLOOD CHOLESTEROL
     Route: 048
     Dates: start: 2012
  20. ASPIRIN [Concomitant]
     Indication: PROPHYLAXIS
     Dates: start: 2008

REACTIONS (14)
  - Diabetic neuropathy [Unknown]
  - Transient ischaemic attack [Unknown]
  - Nervousness [Unknown]
  - Malaise [Unknown]
  - Nausea [Unknown]
  - Insomnia [Unknown]
  - Anxiety [Unknown]
  - Tension [Unknown]
  - Speech disorder [Unknown]
  - Body height decreased [Unknown]
  - Mania [Unknown]
  - Drug hypersensitivity [Unknown]
  - Drug ineffective [Unknown]
  - Drug dose omission [Unknown]
